FAERS Safety Report 5953595-0 (Version None)
Quarter: 2008Q4

REPORT INFORMATION
  Report Type: 
  Country: None (occurrence: None)
  Receive Date: 20081114
  Receipt Date: 20081110
  Transmission Date: 20090506
  Serious: Yes (Death, Hospitalization)
  Sender: FDA-Public Use
  Company Number: A0756580A

PATIENT
  Age: 68 Year
  Sex: Female
  Weight: 97.3 kg

DRUGS (1)
  1. AVANDIA [Suspect]
     Dosage: 8MG PER DAY
     Route: 048
     Dates: start: 19991101, end: 20050901

REACTIONS (1)
  - MYOCARDIAL INFARCTION [None]
